FAERS Safety Report 14212362 (Version 3)
Quarter: 2018Q1

REPORT INFORMATION
  Report Type: Spontaneous
  Country: JP (occurrence: JP)
  Receive Date: 20171122
  Receipt Date: 20180202
  Transmission Date: 20180508
  Serious: Yes (Hospitalization, Other)
  Sender: FDA-Public Use
  Company Number: JP-PFIZER INC-2017502377

PATIENT
  Age: 47 Year
  Sex: Female
  Weight: 53 kg

DRUGS (11)
  1. FOSPHENYTOIN SODIUM. [Suspect]
     Active Substance: FOSPHENYTOIN SODIUM
     Indication: STATUS EPILEPTICUS
     Dosage: 1125 MG, DAILY
     Route: 041
     Dates: start: 20170306, end: 20170306
  2. FOSPHENYTOIN SODIUM. [Suspect]
     Active Substance: FOSPHENYTOIN SODIUM
     Indication: MYOTONIA
     Dosage: 1125 MG, DAILY
     Route: 041
     Dates: start: 20170208, end: 20170208
  3. VALPROATE NA [Suspect]
     Active Substance: VALPROATE SODIUM
     Indication: MYOTONIA
     Dosage: 400 MG, UNK
     Route: 048
     Dates: start: 20170221, end: 20170226
  4. MAOTO [Concomitant]
     Active Substance: HERBALS
     Indication: INFLUENZA LIKE ILLNESS
     Dosage: 7.5 G, UNK
     Route: 048
     Dates: start: 20170208, end: 20170210
  5. CARBAMAZEPINE. [Concomitant]
     Active Substance: CARBAMAZEPINE
     Indication: MYOTONIA
     Dosage: 300 MG, UNK
     Route: 048
     Dates: start: 20170127, end: 20170206
  6. LECICARBON [Concomitant]
     Active Substance: SODIUM BICARBONATE\SODIUM PHOSPHATE, MONOBASIC
     Indication: CONSTIPATION
     Dosage: UNK
     Route: 054
     Dates: start: 20170309, end: 20170309
  7. PHENYTOIN. [Concomitant]
     Active Substance: PHENYTOIN
     Indication: MYOTONIA
     Dosage: 200 MG, UNK
     Route: 048
     Dates: start: 20170208, end: 20170221
  8. VALPROATE NA [Suspect]
     Active Substance: VALPROATE SODIUM
     Dosage: 800 MG, UNK
     Route: 048
     Dates: start: 20170227, end: 20170301
  9. MEXILETINE HYDROCHLORIDE. [Concomitant]
     Active Substance: MEXILETINE HYDROCHLORIDE
     Indication: MYOTONIA
     Dosage: UNK
     Route: 048
     Dates: start: 20170206, end: 20170208
  10. URSODEOXYCHOLIC ACID [Concomitant]
     Active Substance: URSODIOL
     Indication: HEPATIC FUNCTION ABNORMAL
     Dosage: 300 MG, UNK
     Route: 048
     Dates: start: 20170210
  11. VALPROATE NA [Suspect]
     Active Substance: VALPROATE SODIUM
     Dosage: 1200 MG, UNK
     Route: 048
     Dates: start: 20170302, end: 20170306

REACTIONS (5)
  - Hypoaesthesia [Recovered/Resolved]
  - Paralysis [Recovered/Resolved]
  - Decreased appetite [Recovered/Resolved]
  - Pyrexia [Recovered/Resolved]
  - Hypersensitivity [Recovered/Resolved]

NARRATIVE: CASE EVENT DATE: 20170306
